FAERS Safety Report 10247998 (Version 2)
Quarter: 2015Q1

REPORT INFORMATION
  Report Type: Spontaneous
  Country: FR (occurrence: FR)
  Receive Date: 20140619
  Receipt Date: 20150218
  Transmission Date: 20150720
  Serious: Yes (Other)
  Sender: FDA-Public Use
  Company Number: FR-PFIZER INC-2014164017

PATIENT
  Age: 80 Year
  Sex: Male

DRUGS (6)
  1. EZETROL [Concomitant]
     Active Substance: EZETIMIBE
     Dosage: UNK
     Dates: end: 201401
  2. ATARAX [Suspect]
     Active Substance: HYDROXYZINE\HYDROXYZINE HYDROCHLORIDE
     Indication: PRODUCT USED FOR UNKNOWN INDICATION
     Dosage: UNK
     Route: 048
     Dates: start: 201401
  3. KARDEGIC [Concomitant]
     Active Substance: ASPIRIN LYSINE
  4. FOLIC ACID. [Concomitant]
     Active Substance: FOLIC ACID
  5. TADENAN [Concomitant]
     Active Substance: PYGEUM
  6. LYRICA [Suspect]
     Active Substance: PREGABALIN
     Indication: PRODUCT USED FOR UNKNOWN INDICATION
     Dosage: UNK
     Route: 048
     Dates: start: 201401, end: 201405

REACTIONS (3)
  - Lip oedema [Not Recovered/Not Resolved]
  - Tongue oedema [Not Recovered/Not Resolved]
  - Oedema genital [Not Recovered/Not Resolved]

NARRATIVE: CASE EVENT DATE: 201401
